FAERS Safety Report 9536464 (Version 1)
Quarter: 2013Q2

REPORT INFORMATION
  Report Type: Spontaneous
  Country: US (occurrence: None)
  Receive Date: 20130503
  Receipt Date: 20130503
  Transmission Date: 20140414
  Serious: Yes (Other)
  Sender: FDA-Public Use
  Company Number: 1000043910

PATIENT
  Age: 79 Year
  Sex: Male

DRUGS (7)
  1. DALIRESP [Suspect]
  2. LIPITOR (ATORVASTATIN CALCIUM) [Concomitant]
  3. SPIRIVA (TIPTROPIUM BROMIDE) [Concomitant]
  4. ADVAIR (SERETIDE) [Concomitant]
  5. MICARDIS (TELMISARTAN) [Concomitant]
  6. VYTORIN (INEGY) [Concomitant]
  7. HYDROCHLOROTHIAZIDE [Concomitant]

REACTIONS (1)
  - Tremor [None]
